FAERS Safety Report 17117536 (Version 1)
Quarter: 2019Q4

REPORT INFORMATION
  Report Type: Spontaneous
  Country: IT (occurrence: IT)
  Receive Date: 20191205
  Receipt Date: 20191205
  Transmission Date: 20200122
  Serious: Yes (Hospitalization)
  Sender: FDA-Public Use
  Company Number: IT-MYLANLABS-2019M1119224

PATIENT
  Age: 63 Year
  Sex: Female
  Weight: 63 kg

DRUGS (2)
  1. CAPECITABINE. [Concomitant]
     Active Substance: CAPECITABINE
     Dosage: UNK
     Route: 048
  2. OXALIPLATIN. [Suspect]
     Active Substance: OXALIPLATIN
     Indication: PRODUCT USED FOR UNKNOWN INDICATION
     Dosage: UNK
     Route: 042
     Dates: start: 20181024, end: 20181024

REACTIONS (4)
  - Muscle rigidity [Recovered/Resolved]
  - Hyperventilation [Recovered/Resolved]
  - Diplopia [Recovered/Resolved]
  - Tremor [Recovered/Resolved]

NARRATIVE: CASE EVENT DATE: 20181024
